FAERS Safety Report 19269155 (Version 1)
Quarter: 2021Q2

REPORT INFORMATION
  Report Type: Spontaneous
  Country: IN (occurrence: IN)
  Receive Date: 20210517
  Receipt Date: 20210517
  Transmission Date: 20210717
  Serious: Yes (Other)
  Sender: FDA-Public Use
  Company Number: IN-PFIZER INC-2020144451

PATIENT
  Age: 65 Year
  Sex: Female

DRUGS (2)
  1. FASLODEX [Concomitant]
     Active Substance: FULVESTRANT
     Dosage: UNK
  2. PALBACE [Suspect]
     Active Substance: PALBOCICLIB
     Indication: BREAST CANCER METASTATIC
     Dosage: 125MG/ONCE A DAY
     Route: 048
     Dates: start: 20180328

REACTIONS (5)
  - Decreased immune responsiveness [Unknown]
  - Cerebral thrombosis [Unknown]
  - Neoplasm progression [Unknown]
  - Pain [Unknown]
  - Nervous system disorder [Unknown]
